FAERS Safety Report 4630873-9 (Version None)
Quarter: 2005Q2

REPORT INFORMATION
  Report Type: 
  Country: None (occurrence: None)
  Receive Date: 20050406
  Receipt Date: 20050324
  Transmission Date: 20051028
  Serious: Yes (Disabling, Other)
  Sender: FDA-Public Use
  Company Number: MC200500303

PATIENT
  Age: 77 Year
  Sex: Female

DRUGS (6)
  1. ANGIOMAX [Suspect]
     Dosage: SEE IMAGE
     Route: 042
     Dates: start: 20050324, end: 20050324
  2. ANGIOMAX [Suspect]
     Dosage: SEE IMAGE
     Route: 042
     Dates: start: 20050324, end: 20050324
  3. LIPITOR [Concomitant]
  4. PREDNISONE [Concomitant]
  5. DYAZIDE  (TRIAMTERENE, HYDROCHLOROTHIAZIDE) [Concomitant]
  6. NITROGLYCERIN ^A.L.^ (GLYCERYL TRINITRATE) [Concomitant]

REACTIONS (3)
  - CEREBROVASCULAR ACCIDENT [None]
  - HEADACHE [None]
  - PROTHROMBIN TIME PROLONGED [None]
